FAERS Safety Report 12618891 (Version 1)
Quarter: 2016Q3

REPORT INFORMATION
  Report Type: Spontaneous
  Country: US (occurrence: US)
  Receive Date: 20160803
  Receipt Date: 20160803
  Transmission Date: 20161109
  Serious: No
  Sender: FDA-Public Use
  Company Number: US-XTTRIUM LABORATORIES, INC-1055821

PATIENT
  Age: 81 Year
  Sex: Male
  Weight: 97.73 kg

DRUGS (2)
  1. CHLORHEXIDINE GLUCONATE. [Suspect]
     Active Substance: CHLORHEXIDINE GLUCONATE
     Indication: ORAL SURGERY
     Route: 002
     Dates: start: 20150602, end: 20150606
  2. CHLORHEXIDINE GLUCONATE. [Suspect]
     Active Substance: CHLORHEXIDINE GLUCONATE
     Indication: POSTOPERATIVE CARE
     Route: 002
     Dates: start: 20150602, end: 20150606

REACTIONS (3)
  - Purulent discharge [None]
  - Mouth ulceration [Unknown]
  - No reaction on previous exposure to drug [None]

NARRATIVE: CASE EVENT DATE: 20150606
